FAERS Safety Report 8220236-1 (Version None)
Quarter: 2012Q1

REPORT INFORMATION
  Report Type: 
  Country: None (occurrence: None)
  Receive Date: 20120307
  Receipt Date: 20110909
  Transmission Date: 20120608
  Serious: Yes (Other)
  Sender: FDA-Public Use
  Company Number: PHEH2011US03743

PATIENT
  Age: 61 Year
  Sex: Male

DRUGS (7)
  1. BYSTOLIC [Concomitant]
  2. METFORMIN HCL [Concomitant]
  3. LOSARTAN POTASSIUM [Concomitant]
  4. AMTURNIDE [Suspect]
     Dosage: 1 DF, QD
  5. PLAVIX [Concomitant]
  6. NIASPAN [Concomitant]
  7. SIMVASTATIN [Suspect]

REACTIONS (3)
  - CHEST PAIN [None]
  - MYOCARDIAL INFARCTION [None]
  - DYSPEPSIA [None]
